FAERS Safety Report 19510608 (Version 1)
Quarter: 2021Q3

REPORT INFORMATION
  Report Type: Spontaneous
  Country: FR (occurrence: FR)
  Receive Date: 20210709
  Receipt Date: 20210709
  Transmission Date: 20211014
  Serious: Yes (Life-Threatening)
  Sender: FDA-Public Use
  Company Number: FR-TEVA-2021-FR-1930082

PATIENT
  Age: 87 Year
  Sex: Male
  Weight: 69.6 kg

DRUGS (10)
  1. ATORVASTATINE [Concomitant]
     Active Substance: ATORVASTATIN
     Dosage: UNKNOWN, THERAPY START DATE : ASKU
     Route: 048
  2. PERINDOPRIL [Concomitant]
     Active Substance: PERINDOPRIL
     Dosage: UNKNOWN,THERAPY START DATE : ASKU
     Route: 048
  3. LOVENOX [Interacting]
     Active Substance: ENOXAPARIN SODIUM
     Indication: CARDIOVASCULAR EVENT PROPHYLAXIS
     Dosage: 1 DF
     Route: 058
     Dates: start: 20210605, end: 20210610
  4. LEVETIRACETAM. [Concomitant]
     Active Substance: LEVETIRACETAM
     Dosage: UNKNOWN , THERAPY START DATE : ASKU
     Route: 048
  5. CLOPIDOGREL [Suspect]
     Active Substance: CLOPIDOGREL BISULFATE
     Indication: CARDIOVASCULAR EVENT PROPHYLAXIS
     Dosage: 75 MG , THERAPY START DATE : ASKU
     Route: 048
     Dates: end: 20210610
  6. ASPEGIC (ACETYLSALICYLATE LYSINE) [Interacting]
     Active Substance: ASPIRIN DL-LYSINE
     Indication: CEREBROVASCULAR ACCIDENT
     Dosage: 250 MG
     Route: 042
  7. EZETIMIBE. [Concomitant]
     Active Substance: EZETIMIBE
     Dosage: UNKNOWN,THERAPY START DATE : ASKU
     Route: 048
  8. CARVEDILOL. [Concomitant]
     Active Substance: CARVEDILOL
     Dosage: UNKNOWN, THERAPY START DATE : ASKU
     Route: 048
  9. TRINITRINE [Concomitant]
     Active Substance: NITROGLYCERIN
     Dosage: UNKNOWN, THERAPY START DATE : ASKU
     Route: 062
  10. PANTOPRAZOLE [Concomitant]
     Active Substance: PANTOPRAZOLE
     Dosage: UNKNOWN,THERAPY START DATE : ASKU
     Route: 048

REACTIONS (2)
  - Drug interaction [Not Recovered/Not Resolved]
  - Haemorrhagic transformation stroke [Not Recovered/Not Resolved]

NARRATIVE: CASE EVENT DATE: 20210610
